FAERS Safety Report 4700533-4 (Version None)
Quarter: 2005Q2

REPORT INFORMATION
  Report Type: 
  Country: None (occurrence: None)
  Receive Date: 20050627
  Receipt Date: 20050627
  Transmission Date: 20051028
  Serious: No
  Sender: FDA-Public Use
  Company Number: None

PATIENT
  Sex: Female
  Weight: 72.5755 kg

DRUGS (1)
  1. PRILOSEC [Suspect]
     Dates: start: 20050620, end: 20050623

REACTIONS (2)
  - RASH MACULAR [None]
  - RASH PRURITIC [None]
